FAERS Safety Report 6780990-2 (Version None)
Quarter: 2010Q2

REPORT INFORMATION
  Report Type: 
  Country: None (occurrence: None)
  Receive Date: 20100621
  Receipt Date: 20100621
  Transmission Date: 20101027
  Serious: Yes (Life-Threatening, Hospitalization, Disabling, Other)
  Sender: FDA-Public Use
  Company Number: None

PATIENT
  Age: 16 Month
  Sex: Female
  Weight: 9.5255 kg

DRUGS (1)
  1. CONCENTRATED TYLENOL INFANT DROPS [Suspect]
     Indication: PYREXIA
     Dosage: APPROX 1.6ML EVERY 5 HOURS PO
     Route: 048
     Dates: start: 20090221, end: 20090222

REACTIONS (3)
  - DYSPNOEA [None]
  - FEBRILE CONVULSION [None]
  - SKIN DISCOLOURATION [None]
